FAERS Safety Report 8476655 (Version 6)
Quarter: 2013Q3

REPORT INFORMATION
  Report Type: Report from Study
  Country: JP (occurrence: JP)
  Receive Date: 20120326
  Receipt Date: 20130906
  Transmission Date: 20140515
  Serious: Yes (Other)
  Sender: FDA-Public Use
  Company Number: JP-VERTEX PHARMACEUTICALS INC.-AE-2012-004098

PATIENT
  Age: 56 Year
  Sex: Male

DRUGS (18)
  1. VX-950 (TELAPREVIR) [Suspect]
     Indication: CHRONIC HEPATITIS C
     Dosage: 2250 MG, QD
     Route: 048
     Dates: start: 20120314, end: 20120316
  2. VX-950 (TELAPREVIR) [Suspect]
     Dosage: 750 MG, QD
     Route: 048
     Dates: start: 20120321, end: 20120322
  3. VX-950 (TELAPREVIR) [Suspect]
     Dosage: 1500 MG, QD
     Route: 048
     Dates: start: 20120323, end: 20120606
  4. PEGINTRON [Suspect]
     Indication: CHRONIC HEPATITIS C
     Dosage: 1.5 ?G/KG, QW
     Route: 058
     Dates: start: 20120314, end: 20120819
  5. REBETOL [Suspect]
     Indication: CHRONIC HEPATITIS C
     Dosage: 800 MG, QD
     Route: 048
     Dates: start: 20120314, end: 20120403
  6. REBETOL [Suspect]
     Dosage: 600 MG, QD
     Route: 048
     Dates: start: 20120404, end: 20120417
  7. REBETOL [Suspect]
     Dosage: 400 MG, QD
     Route: 048
     Dates: start: 20120418, end: 20120612
  8. REBETOL [Suspect]
     Dosage: 600 MG, QD
     Route: 048
     Dates: start: 20120613, end: 20120828
  9. ZYLORIC [Suspect]
     Dosage: 100 MG, QD
     Route: 048
     Dates: start: 20120502, end: 20120509
  10. ASPARA POTASSIUM [Concomitant]
     Dosage: 1800 MG, QD
     Route: 048
     Dates: start: 20120411, end: 20120612
  11. DEPAS [Concomitant]
     Dosage: 0.5 MG, QD
     Route: 048
     Dates: start: 20120418, end: 20121017
  12. PREDONINE [Concomitant]
     Dosage: 5 MG, QD
     Route: 048
     Dates: end: 20120612
  13. ALESION [Concomitant]
     Dosage: 20 MG, QD
     Route: 048
     Dates: end: 20120828
  14. PREDNISOLONE [Concomitant]
     Dosage: 20 MG, QD
     Route: 048
     Dates: start: 20120328, end: 20120403
  15. PREDNISOLONE [Concomitant]
     Dosage: 25 MG, QD
     Route: 048
     Dates: start: 20120324, end: 20120327
  16. PREDNISOLONE [Concomitant]
     Dosage: 15 MG, QD
     Route: 048
     Dates: start: 20120404, end: 20120410
  17. PREDNISOLONE [Concomitant]
     Dosage: 10 MG, QD
     Route: 048
     Dates: start: 20120411, end: 20120417
  18. PREDNISOLONE [Concomitant]
     Dosage: 5 MG, QD
     Route: 048
     Dates: start: 20120418

REACTIONS (4)
  - White blood cell count decreased [Recovered/Resolved]
  - Neutrophil count decreased [Recovered/Resolved]
  - Erythema [Recovered/Resolved]
  - Depression [Recovered/Resolved]
